FAERS Safety Report 9139766 (Version 1)
Quarter: 2013Q1

REPORT INFORMATION
  Report Type: Spontaneous
  Country: FR (occurrence: FR)
  Receive Date: 20130305
  Receipt Date: 20130305
  Transmission Date: 20140127
  Serious: Yes (Hospitalization)
  Sender: FDA-Public Use
  Company Number: FR-JNJFOC-20130213590

PATIENT
  Age: 68 Year
  Sex: Male

DRUGS (7)
  1. HALDOL [Suspect]
     Indication: AGGRESSION
     Route: 065
     Dates: start: 20121126, end: 20130121
  2. TIAPRIDAL [Suspect]
     Indication: AGGRESSION
     Route: 065
     Dates: start: 20121126, end: 20130108
  3. TEMESTA [Concomitant]
     Route: 065
     Dates: start: 201211
  4. EQUANIL [Concomitant]
     Route: 065
     Dates: start: 20121123
  5. REMINYL [Concomitant]
     Route: 065
     Dates: start: 2012
  6. SEROPLEX [Concomitant]
     Route: 065
     Dates: start: 2012
  7. FELODIPINE [Concomitant]
     Route: 065
     Dates: start: 2012

REACTIONS (4)
  - Pemphigoid [Recovered/Resolved]
  - Weight decreased [Recovered/Resolved]
  - Haematoma [Unknown]
  - Extrapyramidal disorder [Recovered/Resolved]
